FAERS Safety Report 5149456-X (Version None)
Quarter: 2006Q4

REPORT INFORMATION
  Report Type: 
  Country: None (occurrence: None)
  Receive Date: 20061113
  Receipt Date: 20060125
  Transmission Date: 20070319
  Serious: No
  Sender: FDA-Public Use
  Company Number: 433746

PATIENT
  Age: 54 Year
  Sex: Male

DRUGS (7)
  1. COREG [Suspect]
     Dosage: 12.5MG TWICE PER DAY
     Route: 048
  2. ASPIRIN [Concomitant]
  3. LIPITOR [Concomitant]
  4. LASIX [Concomitant]
  5. LISINOPRIL [Concomitant]
  6. PROTONIX [Concomitant]
  7. FLU VACCINE [Concomitant]

REACTIONS (1)
  - SOMNOLENCE [None]
